FAERS Safety Report 7215533-2 (Version None)
Quarter: 2011Q1

REPORT INFORMATION
  Report Type: 
  Country: None (occurrence: None)
  Receive Date: 20110104
  Receipt Date: 20110104
  Transmission Date: 20110831
  Serious: Yes (Hospitalization)
  Sender: FDA-Public Use
  Company Number: None

PATIENT
  Sex: Female
  Weight: 98.3 kg

DRUGS (4)
  1. CARBOPLATIN [Suspect]
     Dosage: 1058 MG
     Dates: end: 20101109
  2. ERBITUX [Suspect]
     Dosage: 1782 MG
     Dates: end: 20101123
  3. TAXOL [Suspect]
     Dosage: 396 MG
     Dates: end: 20101109
  4. LASIX [Concomitant]

REACTIONS (6)
  - BLOOD POTASSIUM DECREASED [None]
  - BODY TEMPERATURE INCREASED [None]
  - PLATELET COUNT DECREASED [None]
  - WHITE BLOOD CELL COUNT DECREASED [None]
  - CATHETER SITE ERYTHEMA [None]
  - CATHETER SITE DISCHARGE [None]
